FAERS Safety Report 12329500 (Version 2)
Quarter: 2016Q3

REPORT INFORMATION
  Report Type: Spontaneous
  Country: US (occurrence: US)
  Receive Date: 20160503
  Receipt Date: 20160706
  Transmission Date: 20161109
  Serious: Yes (Hospitalization, Other)
  Sender: FDA-Public Use
  Company Number: US-AKRIMAX-TIR-2016-0474

PATIENT
  Age: 35 Year
  Sex: Female
  Weight: 54.93 kg

DRUGS (2)
  1. TIROSINT [Suspect]
     Active Substance: LEVOTHYROXINE SODIUM
     Indication: HYPOTHYROIDISM
     Dosage: ONCE DAILY
     Route: 048
     Dates: start: 201604, end: 20160422
  2. TIROSINT [Suspect]
     Active Substance: LEVOTHYROXINE SODIUM
     Indication: THYROIDECTOMY

REACTIONS (8)
  - White blood cell count decreased [Unknown]
  - Pyrexia [Recovering/Resolving]
  - Platelet count decreased [Unknown]
  - Malaise [Unknown]
  - Weight decreased [Unknown]
  - Rash [Unknown]
  - Meningitis aseptic [Unknown]
  - Campylobacter infection [Unknown]

NARRATIVE: CASE EVENT DATE: 201604
